FAERS Safety Report 4749420-6 (Version None)
Quarter: 2005Q3

REPORT INFORMATION
  Report Type: 
  Country: None (occurrence: None)
  Receive Date: 20050819
  Receipt Date: 20050511
  Transmission Date: 20060218
  Serious: Yes (Death, Other)
  Sender: FDA-Public Use
  Company Number: US-MERCK-0505USA01794

PATIENT
  Age: 74 Year
  Sex: Female
  Weight: 68 kg

DRUGS (1)
  1. VIOXX [Suspect]
     Indication: ARTHRITIS
     Route: 048
     Dates: start: 20030101, end: 20030519

REACTIONS (6)
  - CARDIAC DISORDER [None]
  - CARDIOVASCULAR DISORDER [None]
  - DEATH [None]
  - HYPERTENSION [None]
  - MYOCARDIAL INFARCTION [None]
  - ORGAN FAILURE [None]
